FAERS Safety Report 9640352 (Version 2)
Quarter: 2013Q4

REPORT INFORMATION
  Report Type: Report from Study
  Country: CA (occurrence: CA)
  Receive Date: 20131023
  Receipt Date: 20131023
  Transmission Date: 20140711
  Serious: Yes (Hospitalization, Other)
  Sender: FDA-Public Use
  Company Number: CA-UCBSA-089511

PATIENT
  Age: 55 Year
  Sex: Female
  Weight: 86.36 kg

DRUGS (2)
  1. CIMZIA [Suspect]
     Indication: RHEUMATOID ARTHRITIS
     Dosage: 400 MG ONCE EVERY 4 WEEKS
     Route: 058
     Dates: start: 20120503, end: 201310
  2. CIMZIA [Suspect]
     Indication: RHEUMATOID ARTHRITIS
     Dosage: 400 MG ONCE EVERY 2 WEEKS
     Route: 058
     Dates: start: 20120308, end: 20120405

REACTIONS (6)
  - Pleural effusion [Not Recovered/Not Resolved]
  - Fall [Not Recovered/Not Resolved]
  - Rib fracture [Not Recovered/Not Resolved]
  - Clavicle fracture [Not Recovered/Not Resolved]
  - White blood cell count increased [Unknown]
  - Pain [Unknown]
